FAERS Safety Report 5519951-X (Version None)
Quarter: 2007Q4

REPORT INFORMATION
  Report Type: 
  Country: None (occurrence: None)
  Receive Date: 20071116
  Receipt Date: 20071106
  Transmission Date: 20080405
  Serious: Yes (Other)
  Sender: FDA-Public Use
  Company Number: DE-GENENTECH-250535

PATIENT
  Sex: Female
  Weight: 74 kg

DRUGS (1)
  1. MABTHERA [Suspect]
     Indication: RHEUMATOID ARTHRITIS
     Dosage: 1000 MG, QD
     Route: 042
     Dates: start: 20071004

REACTIONS (1)
  - LEUKOCYTOCLASTIC VASCULITIS [None]
